FAERS Safety Report 4447170-7 (Version None)
Quarter: 2004Q3

REPORT INFORMATION
  Report Type: 
  Country: None (occurrence: None)
  Receive Date: 20040813
  Receipt Date: 20040609
  Transmission Date: 20050211
  Serious: No
  Sender: FDA-Public Use
  Company Number: S04-USA-03865-01

PATIENT
  Age: 78 Year
  Sex: Male

DRUGS (5)
  1. NAMENDA [Suspect]
     Indication: MEMORY IMPAIRMENT
     Dosage: 15 MG QD PO
     Route: 048
     Dates: start: 20040601, end: 20040607
  2. NAMENDA [Suspect]
     Indication: MEMORY IMPAIRMENT
     Dosage: 10 MG BID PO
     Route: 048
     Dates: start: 20040608
  3. NAMENDA [Suspect]
     Indication: MEMORY IMPAIRMENT
     Dosage: 5 MG QD PO
     Route: 048
     Dates: start: 20040518, end: 20040524
  4. NAMENDA [Suspect]
     Indication: MEMORY IMPAIRMENT
     Dosage: 10 MG QD PO
     Route: 048
     Dates: start: 20040525, end: 20040531
  5. HEART MEDICATION (NOS) [Concomitant]

REACTIONS (2)
  - ABNORMAL BEHAVIOUR [None]
  - DEPRESSION [None]
